APPROVED DRUG PRODUCT: PROCARDIA
Active Ingredient: NIFEDIPINE
Strength: 20MG **Federal Register determination that product was not discontinued or withdrawn for safety or effectiveness reasons**
Dosage Form/Route: CAPSULE;ORAL
Application: N018482 | Product #002
Applicant: PFIZER INC
Approved: Jul 24, 1986 | RLD: Yes | RS: No | Type: DISCN